FAERS Safety Report 9018167 (Version 1)
Quarter: 2013Q1

REPORT INFORMATION
  Report Type: Spontaneous
  Country: US (occurrence: None)
  Receive Date: 20130111
  Receipt Date: 20130111
  Transmission Date: 20140127
  Serious: Yes (Disabling)
  Sender: FDA-Public Use
  Company Number: None

PATIENT
  Age: 66 Year
  Sex: Male
  Weight: 100 kg

DRUGS (2)
  1. EPTACOG ALFA [Suspect]
     Dosage: 1 MG ONCE IV BOLUS
     Route: 040
     Dates: start: 20121129, end: 20121129
  2. FACTOR IX COMPLEX [Suspect]
     Dosage: 1080 UNITS ONCE IV BOLUS
     Route: 040
     Dates: start: 20121129, end: 20121129

REACTIONS (1)
  - Coronary artery occlusion [None]
